FAERS Safety Report 4873457-X (Version None)
Quarter: 2006Q1

REPORT INFORMATION
  Report Type: 
  Country: None (occurrence: None)
  Receive Date: 20060105
  Receipt Date: 20051229
  Transmission Date: 20060701
  Serious: Yes (Other)
  Sender: FDA-Public Use
  Company Number: DE-JNJFOC-20050606832

PATIENT
  Age: 54 Year
  Sex: Male

DRUGS (8)
  1. HALDOL [Suspect]
     Route: 065
  2. HALDOL [Suspect]
     Route: 065
  3. HALDOL [Suspect]
     Route: 065
  4. HALDOL [Suspect]
     Route: 065
  5. HALDOL [Suspect]
     Indication: SCHIZOPHRENIA
     Route: 065
  6. ZYPREXA [Suspect]
     Indication: SCHIZOPHRENIA
     Route: 065
  7. DIAZEPAM [Suspect]
     Route: 048
  8. DIAZEPAM [Suspect]
     Indication: DRUG USE FOR UNKNOWN INDICATION
     Route: 048

REACTIONS (5)
  - BRADYCARDIA [None]
  - FATIGUE [None]
  - HEAD INJURY [None]
  - HYPOTENSION [None]
  - SYNCOPE [None]
